FAERS Safety Report 4340747-9 (Version None)
Quarter: 2004Q2

REPORT INFORMATION
  Report Type: 
  Country: None (occurrence: None)
  Receive Date: 20040414
  Receipt Date: 20040224
  Transmission Date: 20050107
  Serious: Yes (Life-Threatening, Hospitalization)
  Sender: FDA-Public Use
  Company Number: A01200400852

PATIENT
  Age: 57 Year
  Sex: Female

DRUGS (4)
  1. STILNOX             (ZOLPIDEM) [Suspect]
     Indication: SEDATION
     Dosage: 20 MG HS
     Dates: start: 20040101, end: 20040101
  2. OLANZAPINE [Suspect]
     Indication: PSYCHOTIC DISORDER
     Dosage: 10 MG
     Dates: start: 20040101
  3. EFFEXOR [Concomitant]
  4. LITHIUM [Concomitant]

REACTIONS (4)
  - AMNESIA [None]
  - CONFUSIONAL STATE [None]
  - DELIRIUM [None]
  - RESTLESSNESS [None]
